FAERS Safety Report 10349308 (Version 1)
Quarter: 2014Q3

REPORT INFORMATION
  Report Type: Spontaneous
  Country: US (occurrence: US)
  Receive Date: 20140730
  Receipt Date: 20140730
  Transmission Date: 20150326
  Serious: No
  Sender: FDA-Public Use
  Company Number: US-BIOGENIDEC-2014BI072348

PATIENT
  Sex: Female
  Weight: 69 kg

DRUGS (8)
  1. CYMBALTA [Concomitant]
     Active Substance: DULOXETINE HYDROCHLORIDE
  2. OXYCONTIN [Concomitant]
     Active Substance: OXYCODONE HYDROCHLORIDE
  3. TOPAMAX [Concomitant]
     Active Substance: TOPIRAMATE
  4. BACLOFEN. [Concomitant]
     Active Substance: BACLOFEN
  5. TUMS [Concomitant]
     Active Substance: CALCIUM CARBONATE
  6. LISINOPRIL. [Concomitant]
     Active Substance: LISINOPRIL
  7. MAXALT [Concomitant]
     Active Substance: RIZATRIPTAN BENZOATE
  8. TECFIDERA [Suspect]
     Active Substance: DIMETHYL FUMARATE
     Indication: PRODUCT USED FOR UNKNOWN INDICATION
     Route: 048

REACTIONS (5)
  - Morbid thoughts [Not Recovered/Not Resolved]
  - Abdominal discomfort [Unknown]
  - Depression [Not Recovered/Not Resolved]
  - Suicidal ideation [Not Recovered/Not Resolved]
  - Diarrhoea [Unknown]
